FAERS Safety Report 8197639-7 (Version None)
Quarter: 2012Q1

REPORT INFORMATION
  Report Type: 
  Country: None (occurrence: None)
  Receive Date: 20120309
  Receipt Date: 20120301
  Transmission Date: 20120608
  Serious: Yes (Other)
  Sender: FDA-Public Use
  Company Number: US-GENZYME-CERZ-1002417

PATIENT
  Sex: Male
  Weight: 16.3 kg

DRUGS (3)
  1. CEREZYME [Suspect]
     Indication: GAUCHER'S DISEASE
     Dosage: 60 U/KG, Q2W
     Route: 042
     Dates: start: 20111006
  2. MULTI-VITAMIN [Concomitant]
     Indication: MEDICAL DIET
     Dosage: UNK
     Route: 065
  3. ZYRTEC [Concomitant]
     Indication: PREMEDICATION
     Dosage: UNK
     Route: 065

REACTIONS (2)
  - UPPER LIMB FRACTURE [None]
  - FALL [None]
